FAERS Safety Report 12626025 (Version 6)
Quarter: 2016Q4

REPORT INFORMATION
  Report Type: Spontaneous
  Country: US (occurrence: US)
  Receive Date: 20160805
  Receipt Date: 20161104
  Transmission Date: 20170207
  Serious: No
  Sender: FDA-Public Use
  Company Number: PHEH2016US018790

PATIENT
  Age: 38 Year
  Sex: Female

DRUGS (1)
  1. DABRAFENIB [Suspect]
     Active Substance: DABRAFENIB
     Indication: PRODUCT USED FOR UNKNOWN INDICATION
     Route: 065

REACTIONS (20)
  - Dizziness [Recovered/Resolved]
  - Skin discolouration [Recovered/Resolved]
  - Paraesthesia [Unknown]
  - Nervousness [Recovering/Resolving]
  - Neutrophil count increased [Unknown]
  - Chills [Recovered/Resolved]
  - Blood sodium decreased [Unknown]
  - Nasopharyngitis [Recovering/Resolving]
  - PCO2 decreased [Unknown]
  - Tremor [Recovered/Resolved]
  - Lymphocyte count decreased [Unknown]
  - Pyrexia [Recovered/Resolved]
  - Fatigue [Unknown]
  - Accidental exposure to product [Recovered/Resolved]
  - Feeling cold [Recovered/Resolved]
  - Blood calcium decreased [Unknown]
  - Calcium ionised decreased [Unknown]
  - Pharyngitis streptococcal [Recovered/Resolved]
  - Blood urea decreased [Unknown]
  - Hypoaesthesia [Recovered/Resolved]

NARRATIVE: CASE EVENT DATE: 20160726
